FAERS Safety Report 13522400 (Version 2)
Quarter: 2017Q2

REPORT INFORMATION
  Report Type: Spontaneous
  Country: CA (occurrence: CA)
  Receive Date: 20170508
  Receipt Date: 20170612
  Transmission Date: 20170830
  Serious: Yes (Other)
  Sender: FDA-Public Use
  Company Number: CA-TEVA-762981ACC

PATIENT
  Age: 70 Year
  Sex: Female

DRUGS (5)
  1. CLONIDINE. [Concomitant]
     Active Substance: CLONIDINE
     Indication: MENOPAUSAL SYMPTOMS
  2. RATIO FLUTICASONE [Suspect]
     Active Substance: FLUTICASONE
     Indication: SEASONAL ALLERGY
     Dosage: 1 DOSAGE FORMS DAILY; STRENGTH: 50MCG. IDF: 1 SPRAY IN EACH NOSTRIL EACH MORNING
     Route: 045
     Dates: start: 20170419, end: 20170419
  3. NEXIUM [Concomitant]
     Active Substance: ESOMEPRAZOLE MAGNESIUM
  4. DOMPERIDONE [Concomitant]
     Active Substance: DOMPERIDONE
     Dosage: 30 MILLIGRAM DAILY; BEFORE MEALS
  5. RATIO FLUTICASONE [Suspect]
     Active Substance: FLUTICASONE
     Indication: SEASONAL ALLERGY

REACTIONS (14)
  - Anaphylactic reaction [Unknown]
  - Dyspnoea [Unknown]
  - Blood pressure increased [Unknown]
  - Tremor [Unknown]
  - Malaise [Unknown]
  - Heart rate increased [Unknown]
  - Pruritus [Unknown]
  - Throat irritation [Unknown]
  - Hypersensitivity [Unknown]
  - Nasal discomfort [Unknown]
  - Oropharyngeal pain [Unknown]
  - Respiratory rate increased [Unknown]
  - Pharyngeal oedema [Unknown]
  - Product substitution issue [Unknown]

NARRATIVE: CASE EVENT DATE: 20170419
